FAERS Safety Report 19781386 (Version 2)
Quarter: 2021Q3

REPORT INFORMATION
  Report Type: Spontaneous
  Country: NL (occurrence: NL)
  Receive Date: 20210903
  Receipt Date: 20210920
  Transmission Date: 20211014
  Serious: Yes (Life-Threatening, Hospitalization)
  Sender: FDA-Public Use
  Company Number: NL-AUROBINDO-AUR-APL-2021-037411

PATIENT
  Age: 32 Year
  Sex: Female
  Weight: 80 kg

DRUGS (4)
  1. COMIRNATY [Interacting]
     Active Substance: TOZINAMERAN
     Indication: COVID-19 IMMUNISATION
     Dosage: 1 DOSAGE FORM
     Route: 065
     Dates: start: 20210704
  2. OXYCODONE 5MG [Suspect]
     Active Substance: OXYCODONE
     Indication: POST PROCEDURAL COMPLICATION
     Dosage: 5 MILLIGRAM (CAPSULE)
     Route: 065
  3. OXYCODONE 10MG [Interacting]
     Active Substance: OXYCODONE
     Indication: POST PROCEDURAL COMPLICATION
     Dosage: 10 MILLIGRAM (CAPSULE)
     Route: 065
  4. LISDEXAMFETAMINE [Concomitant]
     Active Substance: LISDEXAMFETAMINE
     Indication: PRODUCT USED FOR UNKNOWN INDICATION
     Dosage: 50 MILLIGRAM (CAPSULE)
     Route: 065

REACTIONS (6)
  - Injection site pain [Recovered/Resolved]
  - Drug interaction [Recovering/Resolving]
  - Amenorrhoea [Not Recovered/Not Resolved]
  - Injection site warmth [Recovered/Resolved]
  - Headache [Recovered/Resolved]
  - Injection site inflammation [Recovered/Resolved]

NARRATIVE: CASE EVENT DATE: 20210704
